FAERS Safety Report 9202857 (Version 3)
Quarter: 2013Q2

REPORT INFORMATION
  Report Type: Spontaneous
  Country: JP (occurrence: JP)
  Receive Date: 20130402
  Receipt Date: 20130503
  Transmission Date: 20140414
  Serious: Yes (Other)
  Sender: FDA-Public Use
  Company Number: JP-AMGEN-JPNSP2013022038

PATIENT
  Age: 47 Year
  Sex: Female
  Weight: 62 kg

DRUGS (40)
  1. GRAN [Suspect]
     Indication: MYELODYSPLASTIC SYNDROME
     Dosage: 300 MUG, AS NECESSARY
     Route: 058
     Dates: start: 201205, end: 20130309
  2. GRAN [Suspect]
     Dosage: 300 MUG, UNK
     Route: 042
     Dates: start: 20130313
  3. FAMOTIDINE [Concomitant]
     Dosage: 20 MG, QD
     Route: 040
     Dates: start: 20130225, end: 20130225
  4. ISOTONIC SODIUM CHLORIDE SOLUTION [Concomitant]
     Dosage: 40 ML, QD
     Route: 040
     Dates: start: 20130225, end: 20130225
  5. ISOTONIC SODIUM CHLORIDE SOLUTION [Concomitant]
     Dosage: 20 ML, QD
     Route: 040
     Dates: start: 20130226, end: 20130226
  6. ISOTONIC SODIUM CHLORIDE SOLUTION [Concomitant]
     Dosage: 40 ML, QD
     Route: 040
     Dates: start: 20130305, end: 20130305
  7. ISOTONIC SODIUM CHLORIDE SOLUTION [Concomitant]
     Dosage: 20 ML, QD
     Route: 040
     Dates: start: 20130306, end: 20130307
  8. ISOTONIC SODIUM CHLORIDE SOLUTION [Concomitant]
     Dosage: 50 ML, QD
     Route: 041
     Dates: start: 20130306, end: 20130306
  9. ISOTONIC SODIUM CHLORIDE SOLUTION [Concomitant]
     Dosage: 150 ML, QD
     Route: 041
     Dates: start: 20130307, end: 20130313
  10. SAXIZON [Concomitant]
     Dosage: 200 MG, QD
     Route: 040
  11. SAXIZON [Concomitant]
     Dosage: 100 MG, UNK
     Route: 040
     Dates: start: 20130226, end: 20130305
  12. SAXIZON [Concomitant]
     Dosage: 50 MG, QD
     Route: 040
     Dates: start: 20130306, end: 20130306
  13. SAXIZON [Concomitant]
     Dosage: 200 MG, QD
     Route: 040
     Dates: start: 20130307, end: 20130307
  14. XYZAL [Concomitant]
     Dosage: 5 MG, QD
     Route: 048
     Dates: start: 20130225, end: 20130228
  15. XYZAL [Concomitant]
     Dosage: 10 MG, QD
     Route: 048
     Dates: start: 20130301, end: 20130301
  16. XYZAL [Concomitant]
     Dosage: 5 MG, QD
     Route: 048
     Dates: start: 20130302
  17. GENINAX [Concomitant]
     Dosage: 400 MG, QD
     Route: 048
  18. MAGLAX [Concomitant]
     Dosage: 1320 MG, TID
     Route: 048
     Dates: start: 20130225, end: 20130301
  19. MAGLAX [Concomitant]
     Dosage: UNK
     Route: 048
     Dates: start: 20130304, end: 20130305
  20. MAGLAX [Concomitant]
     Dosage: UNK UNK, TID
     Route: 048
     Dates: start: 20130306, end: 20130310
  21. ESTRANA [Concomitant]
     Dosage: 1 DF, QD
     Route: 062
     Dates: start: 20130325
  22. MUCODYNE [Concomitant]
     Dosage: 250 MG, TID
     Route: 048
     Dates: start: 20130301, end: 20130303
  23. LOXONIN [Concomitant]
     Dosage: 60 MG, PRN
     Route: 048
     Dates: start: 20130301, end: 20130310
  24. LOXONIN [Concomitant]
     Dosage: 7 DF, QD
     Route: 062
     Dates: start: 20130307, end: 20130309
  25. TAKEPRON [Concomitant]
     Dosage: 30 MG, QD
     Route: 048
     Dates: start: 20130301, end: 20130301
  26. TAKEPRON [Concomitant]
     Dosage: 15 MG, QD
     Route: 048
     Dates: start: 20130302
  27. SOLDEM 1 [Concomitant]
     Dosage: 500 ML, QD
     Route: 042
     Dates: start: 20130306, end: 20130306
  28. SOLDEM 1 [Concomitant]
     Dosage: 1500 ML, QD
     Route: 042
     Dates: start: 20130307, end: 20130307
  29. SOLDEM 1 [Concomitant]
     Dosage: 1000 ML, QD
     Route: 042
     Dates: start: 20130308, end: 20130309
  30. SOLDEM 1 [Concomitant]
     Dosage: 500 ML, QD
     Route: 042
     Dates: start: 20130311, end: 20130313
  31. CARBOCAINE [Concomitant]
     Dosage: 2 DF, QD
     Dates: start: 20130306, end: 20130306
  32. CEFEPIME HYDROCHLORIDE [Concomitant]
     Dosage: 4 G, QD
     Route: 041
     Dates: start: 20130307, end: 20130311
  33. CEFEPIME HYDROCHLORIDE [Concomitant]
     Dosage: 2 G, QD
     Route: 041
     Dates: start: 20130312, end: 20130312
  34. HEPARIN NA LOCK [Concomitant]
     Indication: MYELODYSPLASTIC SYNDROME
     Dosage: 2 DF, QD
     Route: 042
     Dates: start: 20030307, end: 20030307
  35. HEPARIN NA LOCK [Concomitant]
     Dosage: 4 DF, QD
     Route: 042
     Dates: start: 20030308, end: 20030313
  36. VITAMEDIN INTRAVENOUS [Concomitant]
     Dosage: 1 DF, QD
     Route: 042
     Dates: start: 20130307, end: 20130313
  37. CEFMETAZON [Concomitant]
     Dosage: 2 G, QD
     Route: 041
     Dates: start: 20130312, end: 20130312
  38. CEFMETAZON [Concomitant]
     Dosage: 4 G, QD
     Route: 041
     Dates: start: 20130313, end: 20130314
  39. CEFMETAZON [Concomitant]
     Dosage: 2 G, QD
     Route: 041
     Dates: start: 20130315, end: 20130315
  40. NEUTROGIN [Concomitant]
     Dosage: UNK

REACTIONS (4)
  - Blood pressure decreased [Recovered/Resolved]
  - Feeling abnormal [Recovered/Resolved]
  - Abdominal pain upper [Recovered/Resolved]
  - Back pain [Recovered/Resolved]
